FAERS Safety Report 8806703 (Version 3)
Quarter: 2012Q4

REPORT INFORMATION
  Report Type: 
  Country: CA (occurrence: CA)
  Receive Date: 20120925
  Receipt Date: 20121030
  Transmission Date: 20130627
  Serious: Yes (Other)
  Sender: FDA-Public Use
  Company Number: PHHY2012CA020266

PATIENT
  Sex: Male

DRUGS (1)
  1. SANDOSTATIN LAR [Suspect]
     Indication: ACROMEGALY
     Dosage: 30 mg once every 4 weeks
     Route: 030
     Dates: start: 19990101

REACTIONS (4)
  - Heart rate increased [Unknown]
  - Needle track marks [Unknown]
  - Injection site mass [Unknown]
  - Blood pressure systolic increased [Unknown]
